FAERS Safety Report 9815044 (Version 2)
Quarter: 2014Q1

REPORT INFORMATION
  Report Type: Spontaneous
  Country: FR (occurrence: FR)
  Receive Date: 20140114
  Receipt Date: 20140114
  Transmission Date: 20141002
  Serious: Yes (Hospitalization, Other)
  Sender: FDA-Public Use
  Company Number: FR-ROCHE-1322867

PATIENT
  Sex: Female

DRUGS (4)
  1. AVASTIN [Suspect]
     Indication: NON-SMALL CELL LUNG CANCER
     Route: 042
  2. AVASTIN [Suspect]
     Route: 042
     Dates: start: 20130627, end: 20130828
  3. ALIMTA [Concomitant]
     Indication: NON-SMALL CELL LUNG CANCER
     Route: 042
     Dates: start: 20130627
  4. CISPLATINE [Concomitant]
     Indication: NON-SMALL CELL LUNG CANCER
     Route: 042
     Dates: start: 20130627

REACTIONS (3)
  - Leukoencephalopathy [Recovering/Resolving]
  - Photophobia [Recovering/Resolving]
  - Headache [Recovered/Resolved]
